FAERS Safety Report 4606595-7 (Version None)
Quarter: 2005Q2

REPORT INFORMATION
  Report Type: 
  Country: None (occurrence: None)
  Receive Date: 20050223
  Receipt Date: 20040526
  Transmission Date: 20051028
  Serious: Yes (Disabling)
  Sender: FDA-Public Use
  Company Number: WAES 0405USA02019

PATIENT
  Age: 71 Year
  Sex: Male

DRUGS (6)
  1. ZOCOR [Suspect]
     Indication: BLOOD CHOLESTEROL INCREASED
     Dosage: PO
     Route: 048
     Dates: start: 20040301, end: 20040401
  2. FLOMAX [Concomitant]
  3. HYDRODIURIL [Concomitant]
  4. PRINIVIL [Concomitant]
  5. PROSCAR [Concomitant]
  6. METFORMIN HCL [Concomitant]

REACTIONS (4)
  - DEPRESSION [None]
  - MEDICATION ERROR [None]
  - MYALGIA [None]
  - SLEEP DISORDER [None]
